FAERS Safety Report 7883606-7 (Version None)
Quarter: 2011Q4

REPORT INFORMATION
  Report Type: 
  Country: None (occurrence: None)
  Receive Date: 20111102
  Receipt Date: 20111027
  Transmission Date: 20120403
  Serious: Yes (Hospitalization)
  Sender: FDA-Public Use
  Company Number: GB-BRISTOL-MYERS SQUIBB COMPANY-16202434

PATIENT
  Age: 42 Year
  Sex: Female

DRUGS (3)
  1. IPILIMUMAB [Suspect]
     Indication: MALIGNANT MELANOMA
     Dosage: INTER ON 25OCT11,237MG
     Route: 042
     Dates: start: 20110828
  2. MORPHINE TARTRATE [Concomitant]
  3. PREGABALIN [Concomitant]

REACTIONS (2)
  - CONSTIPATION [None]
  - SMALL INTESTINAL OBSTRUCTION [None]
